FAERS Safety Report 23117386 (Version 1)
Quarter: 2023Q4

REPORT INFORMATION
  Report Type: Spontaneous
  Country: CA (occurrence: None)
  Receive Date: 20231027
  Receipt Date: 20231027
  Transmission Date: 20240110
  Serious: Yes (Disabling)
  Sender: FDA-Public Use
  Company Number: 2023A178471

PATIENT
  Weight: 104.3 kg

DRUGS (1)
  1. BREZTRI [Suspect]
     Active Substance: BUDESONIDE\FORMOTEROL\GLYCOPYRROLATE
     Indication: Chronic obstructive pulmonary disease
     Route: 055
     Dates: start: 20230623

REACTIONS (9)
  - Chest discomfort [Unknown]
  - Dry mouth [Unknown]
  - Retching [Unknown]
  - Vomiting [Unknown]
  - Pruritus [Unknown]
  - Dyspnoea [Unknown]
  - Feeling abnormal [Unknown]
  - Rash [Unknown]
  - Drug ineffective [Unknown]
